FAERS Safety Report 10058181 (Version 1)
Quarter: 2014Q2

REPORT INFORMATION
  Report Type: Spontaneous
  Country: US (occurrence: None)
  Receive Date: 20140402
  Receipt Date: 20140402
  Transmission Date: 20141212
  Serious: Yes (Hospitalization, Other)
  Sender: FDA-Public Use
  Company Number: VAL_03056_2014

PATIENT
  Age: 52 Year
  Sex: Female

DRUGS (3)
  1. METOPROLOL [Suspect]
     Indication: HYPERTENSION
  2. HYDROCHLOROTHIAZIDE [Suspect]
     Indication: HYPERTENSION
  3. LISINOPRIL [Suspect]
     Indication: HYPERTENSION

REACTIONS (6)
  - Dizziness postural [None]
  - Blood pressure systolic decreased [None]
  - Syncope [None]
  - Dehydration [None]
  - Blood pressure increased [None]
  - Orthostatic intolerance [None]
